FAERS Safety Report 14937005 (Version 2)
Quarter: 2018Q2

REPORT INFORMATION
  Report Type: Spontaneous
  Country: GR (occurrence: GR)
  Receive Date: 20180525
  Receipt Date: 20180531
  Transmission Date: 20180711
  Serious: Yes (Other)
  Sender: FDA-Public Use
  Company Number: GR-ASTELLAS-2018US023398

PATIENT
  Sex: Male

DRUGS (6)
  1. ADVAGRAF [Suspect]
     Active Substance: TACROLIMUS
     Route: 048
     Dates: end: 20180516
  2. CELLCEPT [Concomitant]
     Active Substance: MYCOPHENOLATE MOFETIL\MYCOPHENOLATE MOFETIL HYDROCHLORIDE
     Indication: PRODUCT USED FOR UNKNOWN INDICATION
     Route: 065
  3. SALOFALK                           /00000301/ [Concomitant]
     Active Substance: MESALAMINE
     Indication: COLITIS ULCERATIVE
     Route: 065
  4. ADVAGRAF [Suspect]
     Active Substance: TACROLIMUS
     Indication: LIVER TRANSPLANT
     Route: 048
     Dates: start: 201507
  5. URSOFALK [Concomitant]
     Active Substance: URSODIOL
     Indication: BILE OUTPUT ABNORMAL
     Dosage: 3X250 MG, TWICE DAILY
     Route: 065
  6. T4 [Concomitant]
     Active Substance: LEVOTHYROXINE
     Indication: PRODUCT USED FOR UNKNOWN INDICATION
     Route: 065

REACTIONS (2)
  - Pruritus [Recovered/Resolved]
  - Bile output increased [Not Recovered/Not Resolved]
